FAERS Safety Report 8416757-9 (Version None)
Quarter: 2012Q2

REPORT INFORMATION
  Report Type: 
  Country: None (occurrence: None)
  Receive Date: 20120606
  Receipt Date: 20120529
  Transmission Date: 20120825
  Serious: Yes (Hospitalization)
  Sender: FDA-Public Use
  Company Number: IT-ABBOTT-12P-083-0933956-00

PATIENT
  Sex: Female

DRUGS (8)
  1. FLECAINIDE ACETATE [Concomitant]
     Indication: ATRIAL FIBRILLATION
     Route: 048
  2. CLARITHROMYCIN [Suspect]
     Indication: HELICOBACTER INFECTION
     Dosage: 1 UNIT DAILY
     Route: 048
     Dates: start: 20120507, end: 20120507
  3. ATENOLOL [Concomitant]
     Indication: HYPERTENSION
     Route: 048
  4. OMEPRAZOLE (PRISOLEC) [Concomitant]
     Indication: HELICOBACTER INFECTION
  5. RAMIPRIL [Concomitant]
     Indication: HYPERTENSION
     Route: 048
  6. AMLODIPINE [Concomitant]
     Indication: HYPERTENSION
     Route: 048
  7. AMOXICILLIN [Concomitant]
     Indication: HELICOBACTER INFECTION
  8. ATORVASTATIN CALCIUM [Concomitant]
     Indication: DYSLIPIDAEMIA
     Route: 048

REACTIONS (6)
  - THROAT IRRITATION [None]
  - DYSPNOEA [None]
  - PRURITUS GENERALISED [None]
  - ABDOMINAL PAIN UPPER [None]
  - BURNING SENSATION [None]
  - ERYTHEMA [None]
